FAERS Safety Report 25058929 (Version 4)
Quarter: 2025Q2

REPORT INFORMATION
  Report Type: Spontaneous
  Country: JP (occurrence: JP)
  Receive Date: 20250310
  Receipt Date: 20250404
  Transmission Date: 20250716
  Serious: Yes (Death, Hospitalization)
  Sender: EISAI
  Company Number: JP-Eisai-202416028_LEN-EC_P_1

PATIENT
  Age: 77 Year
  Sex: Female

DRUGS (2)
  1. LENVIMA [Suspect]
     Active Substance: LENVATINIB
     Indication: Endometrial cancer
     Dates: start: 20250225, end: 20250225
  2. KEYTRUDA [Suspect]
     Active Substance: PEMBROLIZUMAB
     Indication: Endometrial cancer
     Dates: start: 20250225, end: 20250225

REACTIONS (4)
  - Haemorrhage [Fatal]
  - Hepatic ischaemia [Not Recovered/Not Resolved]
  - Deep vein thrombosis [Unknown]
  - Malaise [Unknown]

NARRATIVE: CASE EVENT DATE: 20250225
